FAERS Safety Report 13966765 (Version 1)
Quarter: 2017Q3

REPORT INFORMATION
  Report Type: Spontaneous
  Country: US (occurrence: US)
  Receive Date: 20170913
  Receipt Date: 20170913
  Transmission Date: 20171128
  Serious: No
  Sender: FDA-Public Use
  Company Number: None

PATIENT
  Age: 49 Year
  Sex: Female
  Weight: 66.6 kg

DRUGS (2)
  1. VITAMIN D [Concomitant]
     Active Substance: CHOLECALCIFEROL
  2. VIVELLE-DOT [Suspect]
     Active Substance: ESTRADIOL
     Indication: HORMONE REPLACEMENT THERAPY
     Dosage: ?          QUANTITY:8 PATCH(ES);OTHER FREQUENCY:TWICE A WEEK;?
     Route: 062

REACTIONS (7)
  - Product quality issue [None]
  - Crying [None]
  - Fatigue [None]
  - Alopecia [None]
  - Thinking abnormal [None]
  - Hot flush [None]
  - Weight increased [None]

NARRATIVE: CASE EVENT DATE: 20170803
